FAERS Safety Report 4978709-0 (Version None)
Quarter: 2006Q2

REPORT INFORMATION
  Report Type: 
  Country: None (occurrence: None)
  Receive Date: 20060420
  Receipt Date: 20051026
  Transmission Date: 20061013
  Serious: Yes (Hospitalization)
  Sender: FDA-Public Use
  Company Number: US-MERCK-0510USA09819

PATIENT
  Age: 45 Year
  Sex: Female

DRUGS (1)
  1. VIOXX [Suspect]
     Route: 048

REACTIONS (6)
  - CARDIOVASCULAR DISORDER [None]
  - CHEST PAIN [None]
  - CORONARY ARTERY DISEASE [None]
  - DYSPNOEA [None]
  - NAUSEA [None]
  - POLYTRAUMATISM [None]
